FAERS Safety Report 9125915 (Version 1)
Quarter: 2013Q1

REPORT INFORMATION
  Report Type: Spontaneous
  Country: NL (occurrence: NL)
  Receive Date: 20130121
  Receipt Date: 20130121
  Transmission Date: 20140127
  Serious: Yes (Hospitalization, Other)
  Sender: FDA-Public Use
  Company Number: NL-BAYER-2013-007025

PATIENT
  Age: 2 Year
  Sex: Male

DRUGS (4)
  1. KOGENATE BAYER [Suspect]
     Dosage: 500 IU, TIW
  2. KOGENATE BAYER [Suspect]
     Dosage: 500 IU, BID
  3. KOGENATE BAYER [Suspect]
     Dosage: 1000 IU, 5ID
  4. KOGENATE BAYER [Suspect]

REACTIONS (11)
  - Haemolytic uraemic syndrome [Recovered/Resolved with Sequelae]
  - Enterocolitis haemorrhagic [None]
  - Catheter site haemorrhage [None]
  - Large intestinal stenosis [None]
  - Hyperreflexia [None]
  - Hypertonia [None]
  - Renal failure [None]
  - Epilepsy [None]
  - Thrombocytopenia [None]
  - Neurological symptom [None]
  - Hypertension [None]
